FAERS Safety Report 14329845 (Version 2)
Quarter: 2018Q3

REPORT INFORMATION
  Report Type: Spontaneous
  Country: US (occurrence: US)
  Receive Date: 20171227
  Receipt Date: 20180703
  Transmission Date: 20181010
  Serious: No
  Sender: FDA-Public Use
  Company Number: US-AVEDRO-AVE-2017-0309-AE

PATIENT
  Age: 12 Year
  Sex: Male

DRUGS (4)
  1. ULTRAVIOLET (UV) LIGHT [Suspect]
     Active Substance: DEVICE
     Indication: KERATOCONUS
     Route: 047
     Dates: start: 2017, end: 2017
  2. UNSPECIFIED ANXIETY MEDICATION [Concomitant]
     Active Substance: UNSPECIFIED INGREDIENT
     Indication: ANXIETY
     Dates: start: 2017, end: 2017
  3. RIBOFLAVIN [Suspect]
     Active Substance: RIBOFLAVIN
     Indication: KERATOCONUS
     Route: 047
     Dates: start: 2017, end: 2017
  4. UNSPECIFIED ANESTHETIC DROPS [Concomitant]
     Active Substance: UNSPECIFIED INGREDIENT
     Indication: ANAESTHESIA
     Route: 047
     Dates: start: 2017, end: 2017

REACTIONS (4)
  - Keratorhexis [Unknown]
  - Eye pain [Unknown]
  - Eye irritation [Unknown]
  - Corneal scar [Unknown]

NARRATIVE: CASE EVENT DATE: 2017
